FAERS Safety Report 20723162 (Version 1)
Quarter: 2022Q2

REPORT INFORMATION
  Report Type: Spontaneous
  Country: DE (occurrence: DE)
  Receive Date: 20220419
  Receipt Date: 20220419
  Transmission Date: 20220720
  Serious: Yes (Hospitalization, Other)
  Sender: FDA-Public Use
  Company Number: DE-MACLEODS PHARMACEUTICALS US LTD-MAC2021033660

PATIENT
  Age: 74 Year
  Sex: Male

DRUGS (53)
  1. CANDESARTAN [Suspect]
     Active Substance: CANDESARTAN
     Indication: Blood pressure abnormal
     Dosage: 32 MILLIGRAM, ONCE A DAY (32 MILLIGRAM, QD, STOP DATE: FEB 2021)
     Route: 065
  2. CARVEDILOL [Suspect]
     Active Substance: CARVEDILOL
     Indication: Blood pressure abnormal
     Dosage: 25 MILLIGRAM (25 MILLIGRAM, BID,  (? -0-1-0), MEDICATION ERROR)
     Route: 065
  3. CARVEDILOL [Suspect]
     Active Substance: CARVEDILOL
     Dosage: 25 MILLIGRAM (25 MILLIGRAM, BID, (0-0-1-0), MEDICATION ERROR)
     Route: 065
  4. CARVEDILOL [Suspect]
     Active Substance: CARVEDILOL
     Dosage: 25 MILLIGRAM (25 MILLIGRAM, QD, (? -0-0), MEDICATION ERROR)
     Route: 065
  5. CARVEDILOL [Suspect]
     Active Substance: CARVEDILOL
     Dosage: 25 MILLIGRAM (25 MILLIGRAM, QD, (1-0-0), MEDICATION ERROR)
     Route: 065
  6. CARVEDILOL [Suspect]
     Active Substance: CARVEDILOL
     Dosage: UNK (UNK. TABLET)
     Route: 065
  7. DOXAZOSIN [Suspect]
     Active Substance: DOXAZOSIN MESYLATE
     Indication: Hypertension
     Dosage: 4 MILLIGRAM (4 MILLIGRAM, TID, (?-2-2-0))
     Route: 065
  8. DOXAZOSIN [Suspect]
     Active Substance: DOXAZOSIN MESYLATE
     Indication: Blood pressure abnormal
     Dosage: 8 MILLIGRAM (8 MG (2 AND 1/2))
     Route: 065
  9. DOXAZOSIN [Suspect]
     Active Substance: DOXAZOSIN MESYLATE
     Dosage: 2 DOSAGE FORM (2 DOSAGE FORM, QD,(8 MG),)
     Route: 065
  10. DOXAZOSIN [Suspect]
     Active Substance: DOXAZOSIN MESYLATE
     Dosage: 16 MILLIGRAM, ONCE A DAY (16 MILLIGRAM, QD (8 MG, BID (0-2-0-0)))
     Route: 065
  11. DOXAZOSIN [Suspect]
     Active Substance: DOXAZOSIN MESYLATE
     Dosage: 16 MILLIGRAM (16 MILLIGRAM, QD 8 MG, BID (RETARD)SUSTAINED RELEASE)
     Route: 065
  12. DOXAZOSIN [Suspect]
     Active Substance: DOXAZOSIN MESYLATE
     Dosage: 16 MILLIGRAM, ONCE A DAY (16 MILLIGRAM, QD (8 MG, BID (0-1-0-1)))
     Route: 065
  13. DOXAZOSIN [Suspect]
     Active Substance: DOXAZOSIN MESYLATE
     Dosage: 8 MILLIGRAM (8 MG (2 AND 1/2))
     Route: 065
  14. DOXAZOSIN [Suspect]
     Active Substance: DOXAZOSIN MESYLATE
     Dosage: 16 MILLIGRAM
     Route: 065
  15. FLUVASTATIN [Suspect]
     Active Substance: FLUVASTATIN SODIUM
     Indication: Blood cholesterol abnormal
     Dosage: UNK
     Route: 065
  16. PANTOPRAZOLE SODIUM [Suspect]
     Active Substance: PANTOPRAZOLE SODIUM
     Indication: Abdominal discomfort
     Dosage: 20 MILLIGRAM, ONCE A DAY (20 MILLIGRAM, QD, STOP DATE: MAY 2017)
     Route: 065
  17. TAMSULOSIN [Suspect]
     Active Substance: TAMSULOSIN
     Indication: Prostate infection
     Dosage: 0.4 MILLIGRAM, ONCE A DAY (0.4 MILLIGRAM, QD)
     Route: 065
  18. VALGANCICLOVIR [Suspect]
     Active Substance: VALGANCICLOVIR
     Indication: Product used for unknown indication
     Dosage: 450 MILLIGRAM, ONCE A DAY (450 MILLIGRAM, QD (VALCYTE))
     Route: 065
  19. AMPHO-MORONAL [Suspect]
     Active Substance: AMPHOTERICIN B
     Indication: Product used for unknown indication
     Dosage: 1 DOSAGE FORM (1 DOSAGE FORM, TID, STOP DATE: 29 JUL 2014)
     Route: 065
  20. ARANESP [Suspect]
     Active Substance: DARBEPOETIN ALFA
     Indication: Product used for unknown indication
     Dosage: 10 MILLIGRAM, EVERY WEEK (10 MILLIGRAM, Q.W., STOP DATE: 10 DEC 2014)
     Route: 065
  21. CANDESARTAN CILEXETIL [Suspect]
     Active Substance: CANDESARTAN CILEXETIL
     Indication: Blood pressure abnormal
     Dosage: UNK
     Route: 065
  22. CANDESARTAN CILEXETIL [Suspect]
     Active Substance: CANDESARTAN CILEXETIL
     Dosage: 32 MILLIGRAM, ONCE A DAY (32 MILLIGRAM, QD, STOP DATE: 26-FEB-2021)
     Route: 065
  23. CANDESARTAN CILEXETIL [Suspect]
     Active Substance: CANDESARTAN CILEXETIL
     Dosage: 32 MILLIGRAM, ONCE A DAY (32 MILLIGRAM, QD, STOP DATE: FEB-2021 00:00, TABLET)
     Route: 065
  24. CANDESARTAN CILEXETIL [Suspect]
     Active Substance: CANDESARTAN CILEXETIL
     Dosage: 32 MILLIGRAM, ONCE A DAY  (32 MILLIGRAM, QD, TABLET)
  25. SODIUM BICARBONATE [Suspect]
     Active Substance: SODIUM BICARBONATE
     Indication: Product used for unknown indication
     Dosage: 1 GRAM (1 GRAM, QD)
     Route: 065
  26. CHOLECALCIFEROL [Suspect]
     Active Substance: CHOLECALCIFEROL
     Indication: Product used for unknown indication
     Dosage: UNK
     Route: 065
  27. COTRIMOXAZOLE [Suspect]
     Active Substance: SULFAMETHOXAZOLE\TRIMETHOPRIM
     Indication: Product used for unknown indication
     Dosage: 480 MILLIGRAM (480 MILLIGRAM, STOP DATE: 01 APR 2014)
     Route: 065
  28. DIGITOXIN [Suspect]
     Active Substance: DIGITOXIN
     Indication: Cardiac disorder
     Dosage: 1 DOSAGE FORM, ONCE A DAY (1 DOSAGE FORM, QD, (NOT ON SUNDAYS))
     Route: 065
  29. CHOLECALCIFEROL [Suspect]
     Active Substance: CHOLECALCIFEROL
     Indication: Product used for unknown indication
     Dosage: UNK
     Route: 065
  30. FERROUS GLYCINE SULFATE [Suspect]
     Active Substance: FERROUS GLYCINE SULFATE
     Indication: Product used for unknown indication
     Dosage: 100 MILLIGRAM (100 MILLIGRAM, QD, STOP DATE: 10-JUN-2015)
     Route: 065
  31. FUROSEMIDE [Suspect]
     Active Substance: FUROSEMIDE
     Indication: Fluid retention
     Dosage: 40 MILLIGRAM (40 MILLIGRAM, PRN)
     Route: 065
  32. HYGROTON [Suspect]
     Active Substance: CHLORTHALIDONE
     Indication: Blood pressure abnormal
     Dosage: 0.5 DOSAGE FORM, ONCE A DAY (0.5 DOSAGE FORM, QD)
     Route: 065
  33. CALCIUM CARBONATE\CHOLECALCIFEROL [Suspect]
     Active Substance: CALCIUM CARBONATE\CHOLECALCIFEROL
     Indication: Product used for unknown indication
     Dosage: 1 DOSAGE FORM, TWO TIMES A DAY (1 DOSAGE FORM, BID, STOP DATE: 29-JUL-2017)
     Route: 065
  34. MINOXIDIL [Suspect]
     Active Substance: MINOXIDIL
     Indication: Blood pressure management
     Dosage: UNK (UNK, QD (2.5, TID (1-1-1)))
     Route: 065
  35. MARCUMAR [Suspect]
     Active Substance: PHENPROCOUMON
     Indication: Cardiac disorder
     Dosage: UNK (UNK (0-0-?-0 -1))
     Route: 048
  36. MARCUMAR [Suspect]
     Active Substance: PHENPROCOUMON
     Indication: Anticoagulant therapy
     Dosage: 0.5 DOSAGE FORM
     Route: 065
  37. MYFORTIC [Suspect]
     Active Substance: MYCOPHENOLATE SODIUM
     Indication: Transplant
     Dosage: 1 DOSAGE FORM, TWO TIMES A DAY (1 DOSAGE FORM, BID (2 DF QD))
     Route: 065
  38. NITRENDIPINE [Suspect]
     Active Substance: NITRENDIPINE
     Indication: Blood pressure abnormal
     Dosage: 40 MILLIGRAM, ONCE A DAY (40 MILLIGRAM, QD (20 MG, BID))
     Route: 065
  39. NITRENDIPINE [Suspect]
     Active Substance: NITRENDIPINE
     Dosage: 2 DOSAGE FORM, ONCE A DAY (2 DOSAGE FORM, QD, (20 MG))
     Route: 065
  40. NITRENDIPINE [Suspect]
     Active Substance: NITRENDIPINE
     Dosage: 10 MILLIGRAM, TWO TIMES A DAY (10 MILLIGRAM, BID (20 MG DAILY))
     Route: 065
  41. NITRENDIPINE [Suspect]
     Active Substance: NITRENDIPINE
     Dosage: 40 MILLIGRAM
     Route: 065
  42. NITRENDIPINE [Suspect]
     Active Substance: NITRENDIPINE
     Dosage: 20 MILLIGRAM (20 MILLIGRAM (IN THE MORNING AFTER ABOUT 1 TO 2 HOURS))
     Route: 065
  43. NITRENDIPINE [Suspect]
     Active Substance: NITRENDIPINE
     Dosage: 40 MILLIGRAM, ONCE A DAY (40 MILLIGRAM, QD (20 MG, BID))
     Route: 065
  44. PROGRAF [Suspect]
     Active Substance: TACROLIMUS
     Indication: Prostate infection
     Dosage: 1 MILLIGRAM (1 MILLIGRAM, (1.0 MG) STOP DATE IN 2018)
     Route: 065
  45. PROGRAF [Suspect]
     Active Substance: TACROLIMUS
     Indication: Transplant
     Dosage: 0.4 MILLIGRAM, ONCE A DAY (0.4 MILLIGRAM, QD)
     Route: 065
  46. PROGRAF [Suspect]
     Active Substance: TACROLIMUS
     Dosage: 1 MILLIGRAM, TWO TIMES A DAY (1 MILLIGRAM, BID (EVERY 12 HOURS))
     Route: 065
  47. PROGRAF [Suspect]
     Active Substance: TACROLIMUS
     Dosage: 0.5 MILLIGRAM, TWO TIMES A DAY (0.5 MILLIGRAM, BID, EVERY 12 HRS)
     Route: 065
  48. SODIUM BICARBONATE [Suspect]
     Active Substance: SODIUM BICARBONATE
     Indication: Product used for unknown indication
     Dosage: 1 GRAM, ONCE A DAY (1 GRAM, QD (BICANORM))
     Route: 065
  49. TACROLIMUS [Suspect]
     Active Substance: TACROLIMUS
     Indication: Transplant
     Dosage: 0.5 MILLIGRAM, TWO TIMES A DAY (0.5 MILLIGRAM, 0.5 MG, Q12H (0.5 MG, TWICE DAILY)
     Route: 065
  50. TACROLIMUS [Suspect]
     Active Substance: TACROLIMUS
     Dosage: 1 MILLIGRAM (1 MILLIGRAM, BID, 1 MG, Q12H (1 MG, UNKNOWN FREQ))
     Route: 065
  51. TAMSULOSIN HYDROCHLORIDE [Suspect]
     Active Substance: TAMSULOSIN HYDROCHLORIDE
     Indication: Prostate infection
     Dosage: 0.4 MILLIGRAM, ONCE A DAY
     Route: 065
  52. TORSEMIDE [Suspect]
     Active Substance: TORSEMIDE
     Indication: Product used for unknown indication
     Dosage: 0.5 DOSAGE FORM, ONCE A DAY (0.5 DOSAGE FORM, QD)
     Route: 065
  53. VALCYTE [Suspect]
     Active Substance: VALGANCICLOVIR HYDROCHLORIDE
     Indication: Product used for unknown indication
     Dosage: 450 MILLIGRAM, ONCE A DAY (450 MILLIGRAM, QD, STOP DATE: 01-AUG-2014)
     Route: 065

REACTIONS (66)
  - Abdominal wall haemorrhage [Unknown]
  - Actinic keratosis [Unknown]
  - Activated partial thromboplastin time prolonged [Unknown]
  - Aortic arteriosclerosis [Unknown]
  - Aortic dilatation [Unknown]
  - Aortic valve incompetence [Unknown]
  - Arteriosclerosis [Unknown]
  - Atrial fibrillation [Unknown]
  - Atrioventricular block first degree [Unknown]
  - Basal cell carcinoma [Recovered/Resolved]
  - Benign prostatic hyperplasia [Unknown]
  - Bradycardia [Unknown]
  - Blood potassium increased [Unknown]
  - Blood pressure fluctuation [Not Recovered/Not Resolved]
  - Blood 25-hydroxycholecalciferol decreased [Recovered/Resolved]
  - Carotid arteriosclerosis [Unknown]
  - Chronic kidney disease [Unknown]
  - Complications of transplanted kidney [Unknown]
  - COVID-19 [Unknown]
  - C-reactive protein increased [Unknown]
  - Delayed graft function [Unknown]
  - Diverticulum intestinal [Unknown]
  - Dizziness [Unknown]
  - Fear [Unknown]
  - Gastrooesophageal reflux disease [Unknown]
  - Glycosylated haemoglobin increased [Unknown]
  - Haemorrhoids [Unknown]
  - Haemoglobin decreased [Recovered/Resolved]
  - Hepatosplenomegaly [Unknown]
  - Hyperparathyroidism secondary [Unknown]
  - Hypertension [Unknown]
  - Intraductal papillary mucinous neoplasm [Unknown]
  - Intervertebral disc space narrowing [Unknown]
  - Left ventricular hypertrophy [Unknown]
  - Mean cell volume increased [Recovered/Resolved]
  - Metabolic acidosis [Unknown]
  - Myalgia [Unknown]
  - Oedema peripheral [Unknown]
  - Perineal cyst [Unknown]
  - Presyncope [Unknown]
  - Pulmonary hypertension [Unknown]
  - Rectal prolapse [Unknown]
  - Red blood cell count decreased [Recovered/Resolved]
  - Renal artery stenosis [Unknown]
  - Renal cyst haemorrhage [Not Recovered/Not Resolved]
  - Restless legs syndrome [Unknown]
  - Spinal osteoarthritis [Unknown]
  - Spinal stenosis [Unknown]
  - Squamous cell carcinoma of skin [Recovered/Resolved]
  - Swelling [Unknown]
  - Thrombosis [Unknown]
  - Vascular compression [Unknown]
  - Vascular anastomotic haemorrhage [Unknown]
  - Vertigo [Unknown]
  - Incorrect dose administered [Unknown]
  - Overdose [Unknown]
  - Haemorrhage [Unknown]
  - Hepatic steatosis [Unknown]
  - Headache [Unknown]
  - Insomnia [Unknown]
  - Large intestine polyp [Unknown]
  - Renal cyst [Unknown]
  - Restlessness [Unknown]
  - Swelling face [Unknown]
  - Swelling of eyelid [Unknown]
  - Drug ineffective [Unknown]

NARRATIVE: CASE EVENT DATE: 20140205
